FAERS Safety Report 6005753-7 (Version None)
Quarter: 2008Q4

REPORT INFORMATION
  Report Type: 
  Country: None (occurrence: None)
  Receive Date: 20081217
  Receipt Date: 20081211
  Transmission Date: 20090506
  Serious: No
  Sender: FDA-Public Use
  Company Number: US-BAYER-200840762NA

PATIENT
  Age: 36 Year
  Sex: Female

DRUGS (3)
  1. YAZ [Suspect]
     Indication: CONTRACEPTION
     Route: 048
     Dates: start: 20080601
  2. PLAN B [Concomitant]
     Dates: start: 20081210
  3. ANTIBIOTICS NOS [Concomitant]
     Indication: PHARYNGITIS STREPTOCOCCAL
     Dates: start: 20081213

REACTIONS (2)
  - NO ADVERSE EVENT [None]
  - PHARYNGITIS STREPTOCOCCAL [None]
